FAERS Safety Report 7803820-6 (Version None)
Quarter: 2011Q4

REPORT INFORMATION
  Report Type: 
  Country: None (occurrence: None)
  Receive Date: 20111010
  Receipt Date: 20110926
  Transmission Date: 20120403
  Serious: No
  Sender: FDA-Public Use
  Company Number: PHFR2011GB05222

PATIENT
  Sex: Male
  Weight: 90 kg

DRUGS (2)
  1. TEGRETOL [Suspect]
     Indication: TRIGEMINAL NEURALGIA
     Dosage: 200 MG, DAILY
     Route: 048
     Dates: start: 20110905, end: 20110909
  2. IBUPROFEN [Concomitant]
     Indication: TRIGEMINAL NEURALGIA
     Dosage: 600 MG, DAILY
     Route: 048
     Dates: start: 20110906, end: 20110909

REACTIONS (2)
  - MALAISE [None]
  - NAUSEA [None]
